FAERS Safety Report 20901440 (Version 1)
Quarter: 2022Q2

REPORT INFORMATION
  Report Type: Spontaneous
  Country: US (occurrence: None)
  Receive Date: 20220601
  Receipt Date: 20220601
  Transmission Date: 20220721
  Serious: Yes (Hospitalization, Other)
  Sender: FDA-Public Use
  Company Number: None

PATIENT
  Age: 64 Year
  Sex: Female
  Weight: 119.25 kg

DRUGS (15)
  1. CONTRAVE [Suspect]
     Active Substance: BUPROPION HYDROCHLORIDE\NALTREXONE HYDROCHLORIDE
     Indication: Weight decreased
     Route: 048
     Dates: start: 20211108
  2. LISPRO [Concomitant]
  3. OZEMPIC [Concomitant]
  4. TOUJEO [Concomitant]
     Active Substance: INSULIN GLARGINE
  5. METOPROLOL [Concomitant]
  6. LISINOPRIL [Concomitant]
  7. EFFEXOR [Concomitant]
     Active Substance: VENLAFAXINE HYDROCHLORIDE
  8. TRELEGY ELLIPTA [Concomitant]
     Active Substance: FLUTICASONE FUROATE\UMECLIDINIUM BROMIDE\VILANTEROL TRIFENATATE
  9. ELIQUIS [Concomitant]
     Active Substance: APIXABAN
  10. MONTELUKAST [Concomitant]
  11. FLONASE [Concomitant]
     Active Substance: FLUTICASONE PROPIONATE
  12. ATORVASTATIN [Concomitant]
     Active Substance: ATORVASTATIN
  13. GEMFIBROZIL [Concomitant]
  14. LACOSAMIDE [Concomitant]
     Active Substance: LACOSAMIDE
  15. MULTI-VITAMIN [Concomitant]

REACTIONS (4)
  - Altered state of consciousness [None]
  - Seizure [None]
  - Aphasia [None]
  - Amnesia [None]

NARRATIVE: CASE EVENT DATE: 20211116
